FAERS Safety Report 8907523 (Version 3)
Quarter: 2012Q4

REPORT INFORMATION
  Report Type: 
  Country: IT (occurrence: IT)
  Receive Date: 20121114
  Receipt Date: 20121221
  Transmission Date: 20130627
  Serious: Yes (Hospitalization)
  Sender: FDA-Public Use
  Company Number: IT-PFIZER INC-2012282202

PATIENT
  Age: 68 Year
  Sex: Female

DRUGS (3)
  1. SUTENT [Suspect]
     Indication: RENAL CELL CARCINOMA
     Dosage: 50 mg/kg, 1x/day
     Route: 048
     Dates: start: 20120607, end: 20121008
  2. LEVOTHYROXINE [Concomitant]
  3. OMEPRAZOLE [Concomitant]

REACTIONS (1)
  - Gastrointestinal angiodysplasia haemorrhagic [Recovered/Resolved]
